FAERS Safety Report 23873484 (Version 1)
Quarter: 2024Q2

REPORT INFORMATION
  Report Type: Spontaneous
  Country: US (occurrence: None)
  Receive Date: 20240517
  Receipt Date: 20240517
  Transmission Date: 20240716
  Serious: No
  Sender: FDA-Public Use
  Company Number: None

PATIENT
  Sex: 0

DRUGS (1)
  1. RABIES VACCINE [Suspect]
     Active Substance: RABIES VACCINE
     Dates: start: 20240411, end: 20240426

REACTIONS (3)
  - Urticaria [None]
  - Palpitations [None]
  - Injection related reaction [None]

NARRATIVE: CASE EVENT DATE: 20240426
